FAERS Safety Report 23678919 (Version 1)
Quarter: 2024Q1

REPORT INFORMATION
  Report Type: Spontaneous
  Country: PR (occurrence: PR)
  Receive Date: 20240327
  Receipt Date: 20240327
  Transmission Date: 20240410
  Serious: Yes (Other)
  Sender: FDA-Public Use
  Company Number: US-APIL-2314061US

PATIENT
  Age: 69 Year
  Sex: Male

DRUGS (1)
  1. PILOCARPINE [Suspect]
     Active Substance: PILOCARPINE
     Indication: Glaucoma
     Dosage: FORM STRENGTH: 1% IN BOTH EYES
     Route: 061

REACTIONS (1)
  - Vitreoretinal traction syndrome [Recovering/Resolving]
